FAERS Safety Report 21293986 (Version 2)
Quarter: 2022Q4

REPORT INFORMATION
  Report Type: Spontaneous
  Country: JP (occurrence: JP)
  Receive Date: 20220905
  Receipt Date: 20221005
  Transmission Date: 20230112
  Serious: No
  Sender: FDA-Public Use
  Company Number: JP-GSK-JP2022JPN124971

PATIENT

DRUGS (3)
  1. SOTROVIMAB [Suspect]
     Active Substance: SOTROVIMAB
     Indication: COVID-19
     Dosage: 500 MG/DAY
     Route: 042
     Dates: start: 20220827, end: 20220827
  2. CALONAL [Suspect]
     Active Substance: ACETAMINOPHEN
     Indication: Pyrexia
     Dosage: 1200 MG/DAY
     Route: 048
     Dates: start: 20220825
  3. CARBOCYSTEINE [Suspect]
     Active Substance: CARBOCYSTEINE
     Indication: Productive cough
     Dosage: 1500 MG/DAY
     Route: 048
     Dates: start: 20220825

REACTIONS (2)
  - Exposure during pregnancy [Unknown]
  - Live birth [Unknown]
